FAERS Safety Report 13665208 (Version 1)
Quarter: 2017Q2

REPORT INFORMATION
  Report Type: Spontaneous
  Country: US (occurrence: US)
  Receive Date: 20170619
  Receipt Date: 20170619
  Transmission Date: 20170830
  Serious: Yes (Life-Threatening, Disabling)
  Sender: FDA-Public Use
  Company Number: None

PATIENT
  Age: 55 Year
  Sex: Female
  Weight: 48.6 kg

DRUGS (14)
  1. CALCIUM MAGNESIUM [Concomitant]
     Active Substance: CALCIUM\MAGNESIUM
  2. PROBIOTIC [Concomitant]
     Active Substance: PROBIOTICS NOS
  3. VITAMIN D [Concomitant]
     Active Substance: CHOLECALCIFEROL
  4. XANAX [Suspect]
     Active Substance: ALPRAZOLAM
     Indication: ANXIETY
     Route: 048
     Dates: start: 20140408, end: 20141115
  5. CHOLESTYRAMINE. [Concomitant]
     Active Substance: CHOLESTYRAMINE
  6. COLLAGEN [Concomitant]
     Active Substance: COLLAGEN
  7. ALOE VERA [Concomitant]
     Active Substance: ALOE VERA LEAF
  8. PROGESTERONE. [Concomitant]
     Active Substance: PROGESTERONE
  9. QUERCTIN [Concomitant]
  10. UBIQUINOL [Concomitant]
     Active Substance: UBIQUINOL
  11. DIGEST ENZYMES [Concomitant]
  12. CLONAZEPAM. [Suspect]
     Active Substance: CLONAZEPAM
     Indication: THERAPY CESSATION
     Route: 048
     Dates: start: 20141115, end: 20160916
  13. MAGNESIUM/POTASSIUM [Concomitant]
  14. C [Concomitant]

REACTIONS (35)
  - Depersonalisation/derealisation disorder [None]
  - Abnormal behaviour [None]
  - Fatigue [None]
  - Pruritus [None]
  - Haemorrhagic diathesis [None]
  - Insomnia [None]
  - Gastrointestinal motility disorder [None]
  - Lymphadenopathy [None]
  - Hallucination [None]
  - Crying [None]
  - Tremor [None]
  - Hypersensitivity [None]
  - Cognitive disorder [None]
  - Increased tendency to bruise [None]
  - Pulse abnormal [None]
  - Gastrointestinal pain [None]
  - Disturbance in attention [None]
  - Temperature regulation disorder [None]
  - Akathisia [None]
  - Myalgia [None]
  - Cystitis interstitial [None]
  - Withdrawal syndrome [None]
  - Depression [None]
  - Myoclonus [None]
  - Skin burning sensation [None]
  - Paraesthesia [None]
  - Gingival bleeding [None]
  - Dyspnoea [None]
  - Drug tolerance increased [None]
  - Suicidal ideation [None]
  - Panic attack [None]
  - Burning sensation [None]
  - Dizziness [None]
  - Vision blurred [None]
  - Pallor [None]
